FAERS Safety Report 15179079 (Version 2)
Quarter: 2018Q3

REPORT INFORMATION
  Report Type: Report from Study
  Country: None (occurrence: US)
  Receive Date: 20180723
  Receipt Date: 20180724
  Transmission Date: 20181010
  Serious: Yes (Hospitalization, Other)
  Sender: FDA-Public Use
  Company Number: US-ABBVIE-18K-163-2382387-00

PATIENT
  Age: 66 Year
  Sex: Male
  Weight: 74.91 kg

DRUGS (1)
  1. HUMIRA [Suspect]
     Active Substance: ADALIMUMAB
     Indication: CROHN^S DISEASE
     Route: 058
     Dates: start: 2016

REACTIONS (4)
  - Procedural pain [Recovered/Resolved]
  - Drug ineffective [Not Recovered/Not Resolved]
  - Intestinal stenosis [Recovered/Resolved]
  - Gastrointestinal obstruction [Unknown]

NARRATIVE: CASE EVENT DATE: 20180503
